FAERS Safety Report 4806827-6 (Version None)
Quarter: 2005Q4

REPORT INFORMATION
  Report Type: 
  Country: None (occurrence: None)
  Receive Date: 20051019
  Receipt Date: 20051010
  Transmission Date: 20060501
  Serious: Yes (Death)
  Sender: FDA-Public Use
  Company Number: T05-ESP-02767-01

PATIENT
  Age: 92 Year
  Sex: Female

DRUGS (3)
  1. MEMANTINE HCL [Suspect]
     Indication: DEMENTIA ALZHEIMER'S TYPE
  2. ANTIARRHYTHMICS [Concomitant]
  3. ANTIAGREGANTS [Concomitant]

REACTIONS (1)
  - CEREBROVASCULAR ACCIDENT [None]
